FAERS Safety Report 7406381-9 (Version None)
Quarter: 2011Q2

REPORT INFORMATION
  Report Type: 
  Country: None (occurrence: None)
  Receive Date: 20110411
  Receipt Date: 20110329
  Transmission Date: 20111010
  Serious: Yes (Other)
  Sender: FDA-Public Use
  Company Number: PHHY2010MX48374

PATIENT
  Sex: Male

DRUGS (4)
  1. ACCUPRIL [Concomitant]
  2. EXFORGE [Suspect]
     Indication: HYPERTENSION
     Dosage: 1 DF, 1 TABLET (160/10 MG) DAILY
     Route: 048
     Dates: start: 20081101
  3. ASPIRIN [Concomitant]
     Dosage: UNK
  4. LOPRESSOR [Concomitant]

REACTIONS (5)
  - EAR DISORDER [None]
  - INFARCTION [None]
  - HYPERTENSION [None]
  - ASTHENIA [None]
  - LUNG DISORDER [None]
